FAERS Safety Report 7325428-1 (Version None)
Quarter: 2011Q1

REPORT INFORMATION
  Report Type: 
  Country: None (occurrence: None)
  Receive Date: 20110302
  Receipt Date: 20100915
  Transmission Date: 20110831
  Serious: Yes (Hospitalization, Other)
  Sender: FDA-Public Use
  Company Number: US-BAYER-201018564NA

PATIENT
  Sex: Female
  Weight: 96.599 kg

DRUGS (16)
  1. YASMIN [Suspect]
     Dosage: UNK
     Dates: start: 20060530, end: 20071212
  2. LUNESTA [Concomitant]
     Indication: ANTIDEPRESSANT THERAPY
     Dosage: DAILY DOSE 3 MG
     Route: 048
     Dates: start: 20070914, end: 20071212
  3. CITALOPRAM [Concomitant]
     Indication: DEPRESSION
     Dosage: DAILY DOSE 40 MG
     Route: 048
     Dates: start: 20070914, end: 20071212
  4. FLUTICASONE [Concomitant]
     Dosage: UNK UNK, QD
     Route: 045
  5. CLARITHROMYCIN [Concomitant]
     Dosage: DAILY DOSE 500 MG
     Route: 048
     Dates: start: 20071018
  6. HYDROCODONE BITARTRATE AND ACETAMINOPHEN [Concomitant]
     Dosage: UNK UNK, Q4HR
     Route: 048
     Dates: start: 20071026
  7. ZOLPIDEM [Concomitant]
     Dosage: DAILY DOSE 10 MG
     Route: 048
     Dates: start: 20070914
  8. AMOXICILLIN [Concomitant]
     Dosage: DAILY DOSE 500 MG
     Route: 048
     Dates: start: 20070914
  9. YAZ [Suspect]
     Indication: PRODUCT USED FOR UNKNOWN INDICATION
     Route: 048
  10. PENICILLIN VK [Concomitant]
     Dosage: DAILY DOSE 250 MG
     Route: 048
     Dates: start: 20060727
  11. YASMIN [Suspect]
     Dosage: UNK
     Dates: start: 20060218
  12. LUNESTA [Concomitant]
     Indication: SLEEP DISORDER
  13. FLUCONAZOLE [Concomitant]
     Dosage: DAILY DOSE 150 MG
     Dates: start: 20070721
  14. LONESTIN [Concomitant]
     Indication: INSOMNIA
     Dosage: UNK
     Dates: start: 20070914
  15. YASMIN [Suspect]
     Indication: ORAL CONTRACEPTION
     Dosage: UNK UNK, UNK
     Route: 048
     Dates: start: 20050927, end: 20071212
  16. CELEXA [Concomitant]
     Indication: DEPRESSION
     Dosage: UNK
     Dates: start: 20070914

REACTIONS (13)
  - ASTHENIA [None]
  - MOBILITY DECREASED [None]
  - OEDEMA PERIPHERAL [None]
  - TACHYPNOEA [None]
  - DIZZINESS [None]
  - SKIN DISCOLOURATION [None]
  - PAIN [None]
  - PULMONARY THROMBOSIS [None]
  - DYSPNOEA [None]
  - RENAL FAILURE [None]
  - DEEP VEIN THROMBOSIS [None]
  - PULMONARY EMBOLISM [None]
  - BACK PAIN [None]
